FAERS Safety Report 7122629-2 (Version None)
Quarter: 2010Q4

REPORT INFORMATION
  Report Type: 
  Country: None (occurrence: None)
  Receive Date: 20101124
  Receipt Date: 20101118
  Transmission Date: 20110411
  Serious: Yes (Other)
  Sender: FDA-Public Use
  Company Number: US-US-EMD SERONO, INC.-7004155

PATIENT
  Sex: Female

DRUGS (4)
  1. REBIF [Suspect]
     Indication: MULTIPLE SCLEROSIS
     Route: 058
     Dates: start: 20030922
  2. GABAPENTIN [Concomitant]
  3. AMANTADINE [Concomitant]
  4. SLEEP AIDS [Concomitant]

REACTIONS (3)
  - APHASIA [None]
  - INJECTION SITE NODULE [None]
  - OPTIC NEURITIS [None]
